FAERS Safety Report 24794874 (Version 1)
Quarter: 2024Q4

REPORT INFORMATION
  Report Type: Spontaneous
  Country: US (occurrence: None)
  Receive Date: 20241231
  Receipt Date: 20241231
  Transmission Date: 20250114
  Serious: Yes (Congenital Anomaly)
  Sender: Public
  Company Number: None

PATIENT
  Age: 0 Year
  Sex: Male
  Weight: 4.5 kg

DRUGS (8)
  1. HYDROXYZINE [Suspect]
     Active Substance: HYDROXYZINE HYDROCHLORIDE
     Dates: start: 20200201
  2. BUPROPION [Suspect]
     Active Substance: BUPROPION
     Dates: start: 20200201
  3. DESVENLAFAXINE [Suspect]
     Active Substance: DESVENLAFAXINE
     Dates: start: 20200201
  4. LAMOTRIGINE [Suspect]
     Active Substance: LAMOTRIGINE
     Dates: start: 20200201
  5. CLONAZEPAM [Suspect]
     Active Substance: CLONAZEPAM
     Dates: start: 20200201
  6. ALBUTEROL [Suspect]
     Active Substance: ALBUTEROL
     Dates: start: 20200201
  7. BUDESONIDE\FORMOTEROL [Suspect]
     Active Substance: BUDESONIDE\FORMOTEROL
     Dates: start: 20200719
  8. QUETIAPINE [Suspect]
     Active Substance: QUETIAPINE
     Dates: start: 20201003

REACTIONS (3)
  - Craniosynostosis [None]
  - Craniofacial deformity [None]
  - Plagiocephaly [None]

NARRATIVE: CASE EVENT DATE: 20201105
